FAERS Safety Report 6402460-3 (Version None)
Quarter: 2009Q4

REPORT INFORMATION
  Report Type: 
  Country: None (occurrence: None)
  Receive Date: 20091009
  Receipt Date: 20090930
  Transmission Date: 20100525
  Serious: Yes (Hospitalization)
  Sender: FDA-Public Use
  Company Number: ADR34112009

PATIENT
  Age: 25 Year
  Sex: Male

DRUGS (3)
  1. CIPROFLOXACIN [Suspect]
     Indication: EYE INFECTION
     Dosage: 1.5 G
  2. BENZYLPENICILLIN [Concomitant]
  3. CEFTAZIDIME [Concomitant]

REACTIONS (4)
  - CONDITION AGGRAVATED [None]
  - EYE EXCISION [None]
  - HYPOPYON [None]
  - KERATITIS [None]
